FAERS Safety Report 25068026 (Version 2)
Quarter: 2025Q2

REPORT INFORMATION
  Report Type: Report from Study
  Country: US (occurrence: US)
  Receive Date: 20250312
  Receipt Date: 20250407
  Transmission Date: 20250717
  Serious: No
  Sender: MYLAN
  Company Number: US-MYLANLABS-2025M1019803

PATIENT
  Sex: Female
  Weight: 143.34 kg

DRUGS (3)
  1. LYRICA [Suspect]
     Active Substance: PREGABALIN
     Indication: Fibromyalgia
     Dosage: UNK, BID (TWICE A DAY)
  2. LYRICA [Suspect]
     Active Substance: PREGABALIN
     Indication: Pain
  3. LYRICA [Suspect]
     Active Substance: PREGABALIN
     Indication: Neuropathy peripheral

REACTIONS (6)
  - Illness [Unknown]
  - Blood pressure abnormal [Unknown]
  - Sleep disorder [Unknown]
  - Heart rate increased [Unknown]
  - Asthma [Unknown]
  - Product substitution issue [Unknown]
